FAERS Safety Report 8183790-4 (Version None)
Quarter: 2012Q1

REPORT INFORMATION
  Report Type: 
  Country: None (occurrence: None)
  Receive Date: 20120305
  Receipt Date: 20120229
  Transmission Date: 20120608
  Serious: Yes (Other)
  Sender: FDA-Public Use
  Company Number: PHHY2012JP018104

PATIENT
  Sex: Male

DRUGS (2)
  1. AMLODIPINE [Concomitant]
  2. DIOVAN [Suspect]
     Dosage: 80 MG, DAILY
     Route: 048

REACTIONS (1)
  - VARICOSE VEIN [None]
